FAERS Safety Report 5636106-9 (Version None)
Quarter: 2008Q1

REPORT INFORMATION
  Report Type: 
  Country: None (occurrence: None)
  Receive Date: 20080225
  Receipt Date: 20080213
  Transmission Date: 20080703
  Serious: Yes (Hospitalization, Other)
  Sender: FDA-Public Use
  Company Number: DE-JNJFOC-20071205526

PATIENT
  Age: 58 Year
  Sex: Male

DRUGS (17)
  1. TAVANIC [Suspect]
     Route: 048
  2. TAVANIC [Suspect]
     Indication: URINARY TRACT INFECTION
     Route: 048
  3. CARBAMAZEPINE [Concomitant]
     Indication: NEUROPATHY PERIPHERAL
     Route: 002
  4. EINSALPHA [Concomitant]
     Indication: RENAL FAILURE
     Route: 048
  5. TORSEMIDE [Concomitant]
     Indication: DIURETIC THERAPY
     Route: 065
  6. CARENAL [Concomitant]
     Indication: RENAL FAILURE
     Route: 048
  7. ASPIRIN [Concomitant]
     Indication: DIURETIC THERAPY
     Route: 065
  8. FOSINORM [Concomitant]
     Indication: HYPERTENSION
     Route: 048
  9. BISOPROLOL FUMARATE [Concomitant]
     Indication: HYPERTENSION
     Route: 048
  10. MIMPARA [Concomitant]
     Indication: HYPERPARATHYROIDISM SECONDARY
     Route: 048
  11. MIMPARA [Concomitant]
     Indication: RENAL FAILURE
     Route: 048
  12. ANTIPHOSPHAT [Concomitant]
     Indication: HYPERPARATHYROIDISM SECONDARY
     Route: 048
  13. ANTIPHOSPHAT [Concomitant]
     Indication: RENAL FAILURE
     Route: 048
  14. RENACET [Concomitant]
     Indication: HYPERPHOSPHATAEMIA
     Route: 048
  15. ANTIPHOSPHAT [Concomitant]
     Indication: HYPERPHOSPHATAEMIA
     Route: 048
  16. ANTIPARATHYROID HORMONES [Concomitant]
     Route: 065
  17. CALCIUM ACETATE [Concomitant]
     Route: 065

REACTIONS (2)
  - NECROSIS [None]
  - TOXIC EPIDERMAL NECROLYSIS [None]
